FAERS Safety Report 5275994-5 (Version None)
Quarter: 2007Q1

REPORT INFORMATION
  Report Type: 
  Country: None (occurrence: None)
  Receive Date: 20070321
  Receipt Date: 20061204
  Transmission Date: 20070707
  Serious: Yes (Hospitalization)
  Sender: FDA-Public Use
  Company Number: 235099K06USA

PATIENT
  Age: 47 Year
  Sex: Female

DRUGS (8)
  1. REBIF [Suspect]
     Indication: MULTIPLE SCLEROSIS
     Dosage: 44 MCG, 3 IN 1 WEEKS, SUBCUTANEOUS
     Route: 058
     Dates: start: 20040920, end: 20060901
  2. LEXAPRO [Concomitant]
  3. ELAVIL [Concomitant]
  4. NAPROSYN [Concomitant]
  5. LYRICA [Concomitant]
  6. FIORICET (AXOTAL /00727001/) [Concomitant]
  7. FLOMAX (MORNIFLUMATE) [Concomitant]
  8. PROTONIX [Concomitant]

REACTIONS (3)
  - SKIN GRAFT [None]
  - THERMAL BURN [None]
  - TREMOR [None]
